FAERS Safety Report 8558147-4 (Version None)
Quarter: 2012Q3

REPORT INFORMATION
  Report Type: 
  Country: None (occurrence: None)
  Receive Date: 20120727
  Receipt Date: 20120727
  Transmission Date: 20120928
  Serious: Yes (Life-Threatening, Hospitalization, Disabling)
  Sender: FDA-Public Use
  Company Number: None

PATIENT
  Age: 52 Year
  Sex: Male
  Weight: 90.7194 kg

DRUGS (2)
  1. LYRICA [Suspect]
     Indication: NEURALGIA
     Dosage: 25MG 3 PO
     Route: 048
     Dates: start: 20120616, end: 20120717
  2. LYRICA [Suspect]
     Indication: SPINAL PAIN
     Dosage: 25MG 3 PO
     Route: 048
     Dates: start: 20120616, end: 20120717

REACTIONS (4)
  - CONSTIPATION [None]
  - ABDOMINAL INJURY [None]
  - BLADDER INJURY [None]
  - NEPHROLITHIASIS [None]
